FAERS Safety Report 8539538-4 (Version None)
Quarter: 2012Q3

REPORT INFORMATION
  Report Type: 
  Country: None (occurrence: None)
  Receive Date: 20120726
  Receipt Date: 20120712
  Transmission Date: 20120928
  Serious: Yes (Other)
  Sender: FDA-Public Use
  Company Number: DE-ELI_LILLY_AND_COMPANY-DE201206005930

PATIENT
  Age: 30 Year
  Sex: Male
  Weight: 75 kg

DRUGS (5)
  1. PRAVASTATIN [Concomitant]
     Dosage: 20 NG, UNKNOWN
  2. OLANZAPINE [Suspect]
     Indication: SCHIZOPHRENIA
     Dosage: 300 MG, 2/M
     Route: 030
     Dates: start: 20120220, end: 20120608
  3. ZYPREXA [Suspect]
     Dosage: 5 MG, EACH MORNING
     Dates: end: 20120511
  4. ZYPREXA [Suspect]
     Dosage: 5 MG, EACH EVENING
     Dates: end: 20120530
  5. LEVOTHYROXINE SODIUM [Concomitant]
     Dosage: 125 UG, UNKNOWN

REACTIONS (9)
  - OVERDOSE [None]
  - SEDATION [None]
  - ASTHENIA [None]
  - DISCOMFORT [None]
  - HYPOTENSION [None]
  - DRUG LEVEL INCREASED [None]
  - DYSPNOEA [None]
  - FATIGUE [None]
  - DIZZINESS [None]
